FAERS Safety Report 8482011-2 (Version None)
Quarter: 2012Q3

REPORT INFORMATION
  Report Type: 
  Country: None (occurrence: None)
  Receive Date: 20120702
  Receipt Date: 20120626
  Transmission Date: 20120928
  Serious: Yes (Death, Hospitalization, Other)
  Sender: FDA-Public Use
  Company Number: PHHY2011JP109064

PATIENT
  Sex: Male
  Weight: 50 kg

DRUGS (14)
  1. AFINITOR [Suspect]
     Indication: METASTATIC RENAL CELL CARCINOMA
     Dosage: 10 MG, DAILY
     Route: 048
     Dates: start: 20110620, end: 20111003
  2. LANSOPRAZOLE [Concomitant]
     Dosage: 15 MG
     Route: 048
  3. LIMAPROST ALFADEX [Concomitant]
     Dosage: 5 UG,
     Route: 048
  4. ZOMETA [Suspect]
     Indication: METASTATIC RENAL CELL CARCINOMA
     Dosage: UNK UKN, UNK
     Route: 041
     Dates: start: 20110627
  5. FLIVASTATIN SODIUM [Concomitant]
     Dosage: 50 MG
     Route: 048
  6. PREDNISOLONE SODIUM SUCCINATE INJ [Suspect]
     Indication: METASTATIC RENAL CELL CARCINOMA
     Dosage: 5 MG
     Route: 048
     Dates: start: 20110621, end: 20110901
  7. ALLOPURINOL [Concomitant]
     Dosage: 100 MG
     Route: 048
  8. VITAMIN B12 [Concomitant]
     Indication: METASTATIC RENAL CELL CARCINOMA
     Dosage: 1500 UG, UNK
     Route: 048
     Dates: start: 20110621, end: 20110901
  9. LIMAPROST ALFADEX [Concomitant]
     Indication: METASTATIC RENAL CELL CARCINOMA
     Dosage: 15 UG
     Route: 048
     Dates: start: 20110621, end: 20110901
  10. BENIDIPINE HYDROCHLORIDE [Concomitant]
     Dosage: 4 MG
     Route: 048
  11. AFINITOR [Suspect]
     Dosage: 5 MG, DAILY
     Route: 048
     Dates: start: 20111214, end: 20111229
  12. AFINITOR [Suspect]
     Dosage: 5 MG, DAILY
     Route: 048
     Dates: start: 20120106, end: 20120109
  13. ACETAMINOPHEN [Concomitant]
     Indication: METASTATIC RENAL CELL CARCINOMA
     Dosage: 900 MG, UNK
     Route: 048
     Dates: start: 20111208
  14. ETODOLAC [Suspect]
     Indication: METASTATIC RENAL CELL CARCINOMA
     Dosage: 400 MG, DAILY
     Route: 048

REACTIONS (6)
  - DEATH [None]
  - RENAL IMPAIRMENT [None]
  - NEOPLASM MALIGNANT [None]
  - PYREXIA [None]
  - NEOPLASM PROGRESSION [None]
  - C-REACTIVE PROTEIN INCREASED [None]
